FAERS Safety Report 8395201-4 (Version None)
Quarter: 2012Q2

REPORT INFORMATION
  Report Type: 
  Country: None (occurrence: None)
  Receive Date: 20120530
  Receipt Date: 20120521
  Transmission Date: 20120825
  Serious: Yes (Hospitalization, Other)
  Sender: FDA-Public Use
  Company Number: US-TEVA-339629USA

PATIENT
  Sex: Female
  Weight: 73 kg

DRUGS (19)
  1. MIDAZOLAM [Suspect]
     Indication: ANAESTHESIA
     Dosage: 1 MG/ML
     Route: 042
     Dates: start: 20120426
  2. MANNITOL [Concomitant]
     Dosage: 200MG/ML
     Dates: start: 20120426
  3. SODIUM BICARBONATE [Concomitant]
  4. ROCURONIUM BROMIDE [Suspect]
     Indication: ANAESTHESIA
     Dosage: 10MG/ML
     Route: 042
     Dates: start: 20120426
  5. CEFAZOLIN [Suspect]
     Dosage: 100 MG/ML
     Dates: start: 20120426
  6. ONDANSETRON [Concomitant]
     Dosage: 2MG/ML
     Dates: start: 20120426
  7. FUROSEMIDE [Concomitant]
     Dosage: 10MG/ML
     Dates: start: 20120426
  8. ERGOCALCIFEROL [Concomitant]
  9. PROPOFOL [Suspect]
     Indication: ANAESTHESIA
     Dosage: 10MG/ML
     Route: 042
     Dates: start: 20120426
  10. EPHEDRINE [Suspect]
     Indication: ANAESTHESIA
     Dosage: 50MG/ML
     Dates: start: 20120426
  11. LISINOPRIL [Concomitant]
  12. ATORVASTATIN CALCIUM [Concomitant]
  13. DESFLURANE [Suspect]
     Indication: ANAESTHESIA
     Dosage: 1DF
     Route: 055
     Dates: start: 20120426
  14. MYCOPHENOLATE MOFETIL [Suspect]
     Indication: RENAL TRANSPLANT
     Dosage: BID
     Route: 042
     Dates: start: 20120426, end: 20120426
  15. FENTANYL-100 [Suspect]
     Indication: ANAESTHESIA
     Dosage: 50MG UG/ML
     Route: 042
     Dates: start: 20120426
  16. MORPHINE [Suspect]
     Indication: ANAESTHESIA
     Dosage: 10MG/ML
     Route: 042
     Dates: start: 20120426
  17. ASP8597 (CODE NOT BROKEN) INJECTION [Suspect]
     Indication: PROPHYLAXIS
     Route: 042
     Dates: start: 20120426, end: 20120426
  18. METHYLPREDNISOLONE ACETATE [Concomitant]
     Dosage: 80MG/ML
     Dates: start: 20120426
  19. HYDROCHLOROTHIAZIDE [Concomitant]

REACTIONS (1)
  - ENCEPHALOPATHY [None]
